FAERS Safety Report 15720258 (Version 1)
Quarter: 2018Q4

REPORT INFORMATION
  Report Type: Spontaneous
  Country: US (occurrence: US)
  Receive Date: 20181213
  Receipt Date: 20181213
  Transmission Date: 20190205
  Serious: Yes (Other)
  Sender: FDA-Public Use
  Company Number: US-OTSUKA-2018_016483

PATIENT
  Sex: Female

DRUGS (1)
  1. ABILIFY [Suspect]
     Active Substance: ARIPIPRAZOLE
     Indication: PRODUCT USED FOR UNKNOWN INDICATION
     Dosage: UNK
     Route: 065
     Dates: start: 20090226, end: 201611

REACTIONS (10)
  - Personal relationship issue [Unknown]
  - Loss of employment [Unknown]
  - Injury [Unknown]
  - Bankruptcy [Unknown]
  - Emotional distress [Unknown]
  - Economic problem [Unknown]
  - Compulsive shopping [Unknown]
  - Pyogenic granuloma [Unknown]
  - Gambling disorder [Recovered/Resolved]
  - Condition aggravated [Recovered/Resolved]

NARRATIVE: CASE EVENT DATE: 2009
